FAERS Safety Report 9104932 (Version 2)
Quarter: 2013Q1

REPORT INFORMATION
  Report Type: Report from Study
  Country: FR (occurrence: FR)
  Receive Date: 20130220
  Receipt Date: 20130301
  Transmission Date: 20140127
  Serious: Yes (Death)
  Sender: FDA-Public Use
  Company Number: FR-PFIZER INC-2013062327

PATIENT
  Age: 6 Year
  Sex: Female
  Weight: 15.4 kg

DRUGS (9)
  1. CRIZOTINIB [Suspect]
     Indication: NEUROBLASTOMA RECURRENT
     Dosage: 180 MG, 2X/DAY
     Route: 048
     Dates: start: 201301
  2. TEMODAL ^SCHERING-PLOUGH^ [Concomitant]
     Indication: NEUROBLASTOMA
     Dosage: 120 MG DAILY ON DAY 1 TO DAY 5 ON 30 DAYS
     Route: 048
     Dates: start: 20121109, end: 20130107
  3. SOLUPRED [Concomitant]
     Indication: NEUROBLASTOMA
     Dosage: 20 MG, 1X/DAY, IN 2 INTAKES
     Route: 048
  4. MOSCONTIN [Concomitant]
     Indication: PAIN
     Dosage: 10 MG, 1X/DAY
     Route: 048
  5. SKENAN [Concomitant]
     Indication: PAIN
     Dosage: 15 MG, 1X/DAY
     Route: 048
  6. RIVOTRIL [Concomitant]
     Dosage: 10 GTT, 1X/DAY
  7. LAROXYL [Concomitant]
     Dosage: 4 GTT, 2X/DAY
  8. MOVICOL [Concomitant]
     Dosage: 2 DF, 1X/DAY
  9. INEXIUM [Concomitant]
     Dosage: 10 MG, UNK

REACTIONS (2)
  - Disease progression [Fatal]
  - Neuroblastoma recurrent [Fatal]
